FAERS Safety Report 17048966 (Version 1)
Quarter: 2019Q4

REPORT INFORMATION
  Report Type: Spontaneous
  Country: US (occurrence: US)
  Receive Date: 20191118
  Receipt Date: 20191118
  Transmission Date: 20200122
  Serious: No
  Sender: FDA-Public Use
  Company Number: None

PATIENT
  Age: 58 Year
  Sex: Female
  Weight: 99 kg

DRUGS (1)
  1. SULFASALAZINE. [Suspect]
     Active Substance: SULFASALAZINE
     Indication: RHEUMATOID ARTHRITIS
     Dosage: ?          QUANTITY:2 TABLET(S);?
     Route: 048
     Dates: start: 20191023, end: 20191116

REACTIONS (9)
  - Burning sensation [None]
  - Erythema [None]
  - Skin discolouration [None]
  - Headache [None]
  - Pruritus [None]
  - Palpitations [None]
  - Ear pain [None]
  - Skin swelling [None]
  - Heart rate irregular [None]

NARRATIVE: CASE EVENT DATE: 20191115
